FAERS Safety Report 24814044 (Version 1)
Quarter: 2025Q1

REPORT INFORMATION
  Report Type: Spontaneous
  Country: GR (occurrence: GR)
  Receive Date: 20250107
  Receipt Date: 20250107
  Transmission Date: 20250409
  Serious: Yes (Disabling, Other)
  Sender: SANOFI AVENTIS
  Company Number: GR-SANOFI-AVENTIS-2012SA064780

PATIENT
  Age: 54 Year
  Sex: Male

DRUGS (4)
  1. DOCETAXEL [Suspect]
     Active Substance: DOCETAXEL
     Indication: Metastatic gastric cancer
     Dosage: 75 MG/M2,QW (120MG  IN TOTAL)
  2. XELODA [Suspect]
     Active Substance: CAPECITABINE
     Indication: Metastatic gastric cancer
     Dosage: 500 MG, QW
  3. DEXAMETHASONE [Concomitant]
     Active Substance: DEXAMETHASONE
     Indication: Metastatic gastric cancer
  4. CARBOPLATIN [Concomitant]
     Active Substance: CARBOPLATIN
     Indication: Metastatic gastric cancer
     Dosage: 450 MG, QW

REACTIONS (2)
  - Dacryostenosis acquired [Unknown]
  - Lacrimation increased [Unknown]
